FAERS Safety Report 5363923-5 (Version None)
Quarter: 2007Q2

REPORT INFORMATION
  Report Type: 
  Country: None (occurrence: None)
  Receive Date: 20070620
  Receipt Date: 20070608
  Transmission Date: 20071010
  Serious: Yes (Other)
  Sender: FDA-Public Use
  Company Number: JP-PFIZER INC-2007046075

PATIENT
  Sex: Male

DRUGS (7)
  1. LIPITOR [Suspect]
     Route: 048
     Dates: start: 20051001, end: 20051101
  2. BAKTAR [Suspect]
     Route: 048
     Dates: start: 20051001, end: 20051119
  3. HERBAL PREPARATION [Suspect]
     Route: 048
     Dates: start: 20051021, end: 20051119
  4. MUCOSTA [Concomitant]
     Dates: start: 20050815, end: 20051119
  5. PREDNISOLONE [Concomitant]
     Dates: start: 20050815, end: 20051119
  6. PERSANTIN [Concomitant]
     Route: 048
     Dates: start: 20050815, end: 20051119
  7. ALTAT [Concomitant]
     Dates: start: 20050815, end: 20051119

REACTIONS (1)
  - STEVENS-JOHNSON SYNDROME [None]
